FAERS Safety Report 5328222-6 (Version None)
Quarter: 2007Q2

REPORT INFORMATION
  Report Type: 
  Country: None (occurrence: None)
  Receive Date: 20070515
  Receipt Date: 20070508
  Transmission Date: 20071010
  Serious: Yes (Hospitalization)
  Sender: FDA-Public Use
  Company Number: 2007BI008713

PATIENT
  Age: 47 Year
  Sex: Female
  Weight: 59.4212 kg

DRUGS (3)
  1. NATALIZUMAB [Suspect]
     Indication: MULTIPLE SCLEROSIS
     Dosage: IV
     Route: 042
     Dates: start: 20061115
  2. SOLU-MEDROL [Concomitant]
  3. TYLENOL [Concomitant]

REACTIONS (4)
  - CONTUSION [None]
  - FALL [None]
  - PAIN [None]
  - UPPER LIMB FRACTURE [None]
